FAERS Safety Report 4282492-4 (Version None)
Quarter: 2004Q1

REPORT INFORMATION
  Report Type: 
  Country: None (occurrence: None)
  Receive Date: 20040129
  Receipt Date: 20040116
  Transmission Date: 20041129
  Serious: Yes (Hospitalization, Other)
  Sender: FDA-Public Use
  Company Number: 2003127203

PATIENT
  Age: 74 Year
  Sex: Male
  Weight: 81.6475 kg

DRUGS (9)
  1. DILANTIN [Suspect]
     Indication: CONVULSION
     Dosage: 30 MG, ORAL
     Route: 048
  2. PHENOBARBITAL TAB [Concomitant]
  3. PIROXICAM [Concomitant]
  4. MULTIVITAMIN [Concomitant]
  5. LONAZOLAC CALCIUM [Concomitant]
  6. METHYLSULFONYLMETHANE [Concomitant]
  7. SELENIUM TRACE METAL ADDITIVE [Concomitant]
  8. TOCOPHEROL CONCENTRATE CAP [Concomitant]
  9. PHENYTOIN [Suspect]
     Indication: CONVULSION
     Dosage: ORAL
     Route: 048
     Dates: end: 20030101

REACTIONS (4)
  - CONVULSION [None]
  - DRUG INEFFECTIVE [None]
  - DRUG LEVEL DECREASED [None]
  - PHARMACEUTICAL PRODUCT COMPLAINT [None]
